FAERS Safety Report 6076411-8 (Version None)
Quarter: 2009Q1

REPORT INFORMATION
  Report Type: 
  Country: None (occurrence: None)
  Receive Date: 20090209
  Receipt Date: 20090127
  Transmission Date: 20090719
  Serious: Yes (Hospitalization)
  Sender: FDA-Public Use
  Company Number: 2008AP002808

PATIENT
  Age: 35 Year
  Sex: Male

DRUGS (2)
  1. CARBAMAZEPINE [Suspect]
     Indication: EPILEPSY
  2. PHENYTOIN [Concomitant]

REACTIONS (9)
  - DRUG HYPERSENSITIVITY [None]
  - DRUG RASH WITH EOSINOPHILIA AND SYSTEMIC SYMPTOMS [None]
  - DRUG TOXICITY [None]
  - FACE OEDEMA [None]
  - GRAND MAL CONVULSION [None]
  - HEPATITIS CHOLESTATIC [None]
  - HYPOTENSION [None]
  - JAUNDICE [None]
  - SKIN EXFOLIATION [None]
